FAERS Safety Report 9376887 (Version 10)
Quarter: 2015Q4

REPORT INFORMATION
  Report Type: Report from Study
  Country: US (occurrence: US)
  Receive Date: 20130701
  Receipt Date: 20151230
  Transmission Date: 20160305
  Serious: Yes (Other)
  Sender: FDA-Public Use
  Company Number: US-JNJFOC-20130611953

PATIENT
  Age: 59 Year
  Sex: Male

DRUGS (38)
  1. REMICADE [Suspect]
     Active Substance: INFLIXIMAB
     Indication: PSORIATIC ARTHROPATHY
     Dosage: PATIENT RECEIVED 20 TOTAL NUMBER OF INFUSIONS
     Route: 042
     Dates: start: 20110602
  2. METHOTREXATE [Concomitant]
     Active Substance: METHOTREXATE
     Indication: PSORIATIC ARTHROPATHY
     Route: 048
     Dates: start: 20110328
  3. MINOCYCLINE [Concomitant]
     Active Substance: MINOCYCLINE\MINOCYCLINE HYDROCHLORIDE
     Indication: LOCALISED INFECTION
     Route: 048
     Dates: start: 20130613, end: 20130622
  4. ZOFRAN [Concomitant]
     Active Substance: ONDANSETRON HYDROCHLORIDE
     Indication: PREMEDICATION
     Route: 042
     Dates: start: 20130517, end: 20130626
  5. METHOTREXATE [Concomitant]
     Active Substance: METHOTREXATE
     Indication: PSORIATIC ARTHROPATHY
     Route: 048
     Dates: start: 201105
  6. KLOR-CON [Concomitant]
     Active Substance: POTASSIUM CHLORIDE
     Indication: ELECTROLYTE SUBSTITUTION THERAPY
     Dosage: 60MEQ /TABLET20MG/3 IN??AM/ORAL??40MG/TABLET/20MG/2 IN PM??/ORAL
     Route: 048
     Dates: start: 201105
  7. PREDNISONE. [Concomitant]
     Active Substance: PREDNISONE
     Indication: LOCALISED INFECTION
     Route: 048
     Dates: start: 20130424
  8. TRAMADOL. [Concomitant]
     Active Substance: TRAMADOL
     Indication: PAIN
     Route: 048
     Dates: start: 20130613
  9. BENADRYL [Concomitant]
     Active Substance: DIPHENHYDRAMINE HYDROCHLORIDE
     Indication: PREMEDICATION
     Route: 042
     Dates: start: 2013, end: 20130626
  10. REMICADE [Suspect]
     Active Substance: INFLIXIMAB
     Indication: PSORIATIC ARTHROPATHY
     Route: 042
     Dates: start: 2012
  11. KLOR-CON [Concomitant]
     Active Substance: POTASSIUM CHLORIDE
     Indication: MUSCLE SPASMS
     Route: 048
     Dates: start: 2010
  12. FOLIC ACID. [Concomitant]
     Active Substance: FOLIC ACID
     Indication: PSORIATIC ARTHROPATHY
     Route: 048
     Dates: start: 201105
  13. MINOCYCLINE [Concomitant]
     Active Substance: MINOCYCLINE\MINOCYCLINE HYDROCHLORIDE
     Indication: INFLAMMATION
     Route: 048
     Dates: start: 20130613, end: 20130622
  14. BENADRYL [Concomitant]
     Active Substance: DIPHENHYDRAMINE HYDROCHLORIDE
     Indication: PREMEDICATION
     Route: 042
     Dates: start: 20130626
  15. METHYLPREDNISOLONE. [Concomitant]
     Active Substance: METHYLPREDNISOLONE
     Indication: PAIN
     Route: 065
     Dates: start: 20130626
  16. METHYLPREDNISOLONE. [Concomitant]
     Active Substance: METHYLPREDNISOLONE
     Indication: INFLAMMATION
     Route: 065
     Dates: start: 20130517
  17. METHOTREXATE [Concomitant]
     Active Substance: METHOTREXATE
     Indication: PSORIATIC ARTHROPATHY
     Route: 048
     Dates: start: 2011
  18. KLOR-CON [Concomitant]
     Active Substance: POTASSIUM CHLORIDE
     Indication: ELECTROLYTE SUBSTITUTION THERAPY
     Route: 048
     Dates: start: 2010
  19. SOLU-MEDROL [Concomitant]
     Active Substance: METHYLPREDNISOLONE SODIUM SUCCINATE
     Indication: PREMEDICATION
     Route: 042
     Dates: start: 20130517, end: 20130626
  20. REMICADE [Suspect]
     Active Substance: INFLIXIMAB
     Indication: PSORIATIC ARTHROPATHY
     Route: 042
     Dates: start: 20130517
  21. METHYLPREDNISOLONE. [Concomitant]
     Active Substance: METHYLPREDNISOLONE
     Indication: PAIN
     Route: 065
     Dates: start: 20130517
  22. KLOR-CON [Concomitant]
     Active Substance: POTASSIUM CHLORIDE
     Indication: MUSCLE SPASMS
     Dosage: 60MEQ /TABLET20MG/3 IN??AM/ORAL??40MG/TABLET/20MG/2 IN PM??/ORAL
     Route: 048
     Dates: start: 201105
  23. TRAMADOL. [Concomitant]
     Active Substance: TRAMADOL
     Indication: LOCALISED INFECTION
     Route: 048
     Dates: start: 20130613
  24. BENADRYL [Concomitant]
     Active Substance: DIPHENHYDRAMINE HYDROCHLORIDE
     Indication: PREMEDICATION
     Route: 042
     Dates: start: 20130517
  25. REMICADE [Suspect]
     Active Substance: INFLIXIMAB
     Indication: PSORIATIC ARTHROPATHY
     Route: 042
     Dates: start: 201305
  26. REMICADE [Suspect]
     Active Substance: INFLIXIMAB
     Indication: PSORIATIC ARTHROPATHY
     Route: 042
     Dates: start: 20110607
  27. METHYLPREDNISOLONE. [Concomitant]
     Active Substance: METHYLPREDNISOLONE
     Indication: INFLAMMATION
     Route: 065
     Dates: start: 20130626
  28. METHYLPREDNISOLONE. [Concomitant]
     Active Substance: METHYLPREDNISOLONE
     Indication: INFLAMMATION
     Route: 065
     Dates: start: 201208, end: 20130518
  29. TRIAMCINOLONE [Concomitant]
     Active Substance: TRIAMCINOLONE
     Indication: LOCALISED INFECTION
     Route: 065
     Dates: start: 20130613
  30. METHYLPREDNISOLONE. [Concomitant]
     Active Substance: METHYLPREDNISOLONE
     Indication: PAIN
     Route: 065
     Dates: start: 201208, end: 20130518
  31. MUPIROCIN. [Concomitant]
     Active Substance: MUPIROCIN
     Indication: LOCALISED INFECTION
     Route: 065
     Dates: start: 20130613
  32. KLOR-CON [Concomitant]
     Active Substance: POTASSIUM CHLORIDE
     Indication: BLOOD POTASSIUM DECREASED
     Route: 048
     Dates: start: 2010
  33. PREDNISONE. [Concomitant]
     Active Substance: PREDNISONE
     Indication: INFLAMMATION
     Route: 048
     Dates: start: 20130424
  34. PEPCID [Concomitant]
     Active Substance: FAMOTIDINE
     Indication: PREMEDICATION
     Route: 042
     Dates: start: 20130517, end: 20130626
  35. REMICADE [Suspect]
     Active Substance: INFLIXIMAB
     Indication: PSORIATIC ARTHROPATHY
     Route: 042
     Dates: start: 201105
  36. REMICADE [Suspect]
     Active Substance: INFLIXIMAB
     Indication: PSORIATIC ARTHROPATHY
     Route: 042
     Dates: start: 20130626
  37. REMICADE [Suspect]
     Active Substance: INFLIXIMAB
     Indication: PSORIATIC ARTHROPATHY
     Route: 042
     Dates: start: 2011
  38. KLOR-CON [Concomitant]
     Active Substance: POTASSIUM CHLORIDE
     Indication: BLOOD POTASSIUM DECREASED
     Dosage: 60MEQ /TABLET20MG/3 IN??AM/ORAL??40MG/TABLET/20MG/2 IN PM??/ORAL
     Route: 048
     Dates: start: 201105

REACTIONS (12)
  - Inflammation [Not Recovered/Not Resolved]
  - Hypoaesthesia [Unknown]
  - Adverse event [Unknown]
  - Nausea [Recovered/Resolved]
  - Infusion related reaction [Recovered/Resolved]
  - Confusional state [Not Recovered/Not Resolved]
  - Vein disorder [Not Recovered/Not Resolved]
  - Drug hypersensitivity [Recovered/Resolved]
  - Skin ulcer [Not Recovered/Not Resolved]
  - Venous haemorrhage [Not Recovered/Not Resolved]
  - Drug ineffective [Recovered/Resolved]
  - Arthralgia [Recovered/Resolved]

NARRATIVE: CASE EVENT DATE: 2011
